FAERS Safety Report 7925821-X (Version None)
Quarter: 2011Q4

REPORT INFORMATION
  Report Type: 
  Country: None (occurrence: None)
  Receive Date: 20111118
  Receipt Date: 20110413
  Transmission Date: 20120403
  Serious: No
  Sender: FDA-Public Use
  Company Number: US-AMGEN-USASP2011019807

PATIENT
  Sex: Female

DRUGS (3)
  1. PREDNISONE TAB [Concomitant]
  2. ENBREL [Suspect]
     Indication: RHEUMATOID ARTHRITIS
     Dosage: UNK
     Dates: start: 20010326, end: 20050101
  3. REMICADE [Concomitant]
     Dosage: UNK

REACTIONS (1)
  - RHEUMATOID ARTHRITIS [None]
